FAERS Safety Report 15673501 (Version 1)
Quarter: 2018Q4

REPORT INFORMATION
  Report Type: Spontaneous
  Country: US (occurrence: US)
  Receive Date: 20181129
  Receipt Date: 20181129
  Transmission Date: 20190205
  Serious: No
  Sender: FDA-Public Use
  Company Number: US-BAUSCH-BL-2017-030945

PATIENT
  Sex: Female

DRUGS (1)
  1. UCERIS [Suspect]
     Active Substance: BUDESONIDE
     Indication: COLITIS
     Dosage: STARTED A FEW YEARS AGO
     Route: 054

REACTIONS (3)
  - Off label use [Not Recovered/Not Resolved]
  - Contusion [Unknown]
  - Headache [Unknown]
